FAERS Safety Report 4393589-2 (Version None)
Quarter: 2004Q3

REPORT INFORMATION
  Report Type: 
  Country: None (occurrence: None)
  Receive Date: 20040706
  Receipt Date: 20040706
  Transmission Date: 20050211
  Serious: Yes (Hospitalization)
  Sender: FDA-Public Use
  Company Number: None

PATIENT
  Age: 28 Year
  Sex: Male
  Weight: 85.2762 kg

DRUGS (1)
  1. ZOLPIDEM TARTRATE [Suspect]

REACTIONS (4)
  - CONTUSION [None]
  - EXCORIATION [None]
  - FALL [None]
  - GLOBAL AMNESIA [None]
